FAERS Safety Report 17483672 (Version 1)
Quarter: 2020Q1

REPORT INFORMATION
  Report Type: Report from Study
  Country: US (occurrence: US)
  Receive Date: 20200302
  Receipt Date: 20200302
  Transmission Date: 20200409
  Serious: Yes (Death, Hospitalization, Other)
  Sender: FDA-Public Use
  Company Number: US-GILEAD-2020-0452868

PATIENT
  Age: 55 Year
  Sex: Male

DRUGS (4)
  1. CABOTEGRAVIR VS PLACEBO [Concomitant]
     Indication: PROPHYLAXIS AGAINST HIV INFECTION
     Dosage: UNK
     Route: 030
     Dates: start: 20180815, end: 20180919
  2. CABOTEGRAVIR VS PLACEBO [Concomitant]
     Dosage: UNK
     Dates: start: 20180919, end: 20200108
  3. AMLODIPINE [Concomitant]
     Active Substance: AMLODIPINE BESYLATE
     Indication: HYPERTENSION
     Dosage: 5 MG, QD
     Route: 048
     Dates: start: 2017
  4. EMTRICITABINE;TENOFOVIR DISOPROXIL FUMARATE [Suspect]
     Active Substance: EMTRICITABINE\TENOFOVIR DISOPROXIL FUMARATE
     Indication: PROPHYLAXIS AGAINST HIV INFECTION
     Dosage: 300/200 MG, DAILY
     Route: 048
     Dates: start: 20180815, end: 20200215

REACTIONS (1)
  - Cardiac disorder [Fatal]

NARRATIVE: CASE EVENT DATE: 20200223
